FAERS Safety Report 10981883 (Version 1)
Quarter: 2015Q2

REPORT INFORMATION
  Report Type: Report from Study
  Country: CA (occurrence: CA)
  Receive Date: 20150402
  Receipt Date: 20150402
  Transmission Date: 20150821
  Serious: Yes (Other)
  Sender: FDA-Public Use
  Company Number: PHHY2015CA035574

PATIENT
  Age: 57 Year
  Sex: Male

DRUGS (3)
  1. CLOZARIL [Suspect]
     Active Substance: CLOZAPINE
     Dosage: 275 MG, QD
     Route: 048
     Dates: start: 20150120
  2. CLOZARIL [Suspect]
     Active Substance: CLOZAPINE
     Indication: BIPOLAR DISORDER
     Dosage: UNK
     Route: 048
     Dates: start: 20150112
  3. CLOZARIL [Suspect]
     Active Substance: CLOZAPINE
     Dosage: DOSE REDUCED
     Route: 048
     Dates: end: 20150318

REACTIONS (5)
  - Enuresis [Recovering/Resolving]
  - Product use issue [Unknown]
  - Ileus [Unknown]
  - Gastric hypomotility [Recovering/Resolving]
  - Drug ineffective [Unknown]

NARRATIVE: CASE EVENT DATE: 20150201
